FAERS Safety Report 11982692 (Version 1)
Quarter: 2016Q1

REPORT INFORMATION
  Report Type: Spontaneous
  Country: US (occurrence: None)
  Receive Date: 20160129
  Receipt Date: 20160129
  Transmission Date: 20160526
  Serious: Yes (Disabling)
  Sender: FDA-Public Use
  Company Number: None

PATIENT
  Age: 54 Year
  Sex: Female
  Weight: 79.38 kg

DRUGS (4)
  1. SUPPLEMENTS [Concomitant]
     Active Substance: UNSPECIFIED INGREDIENT
  2. C-PAP MACHINE [Concomitant]
     Active Substance: DEVICE
  3. CIPRO [Suspect]
     Active Substance: CIPROFLOXACIN HYDROCHLORIDE
     Indication: URINARY TRACT INFECTION
     Route: 048
     Dates: start: 20050101, end: 20050101
  4. ADVIL [Concomitant]
     Active Substance: IBUPROFEN

REACTIONS (6)
  - Nerve stimulation test abnormal [None]
  - Gait disturbance [None]
  - Neuropathy peripheral [None]
  - Balance disorder [None]
  - Abdominal pain [None]
  - Pain [None]

NARRATIVE: CASE EVENT DATE: 20050101
